FAERS Safety Report 6542745-3 (Version None)
Quarter: 2010Q1

REPORT INFORMATION
  Report Type: 
  Country: None (occurrence: None)
  Receive Date: 20100114
  Receipt Date: 20090708
  Transmission Date: 20100710
  Serious: Yes (Hospitalization)
  Sender: FDA-Public Use
  Company Number: 2009008329

PATIENT
  Age: 43 Year
  Sex: Female

DRUGS (2)
  1. ACTIQ [Suspect]
     Indication: INTERVERTEBRAL DISC PROTRUSION
     Dosage: BU
     Route: 002
  2. UNSPECIFIED PSYCHIATRIC MEDICATIONS (ANTIPSYCHOTICS) [Suspect]
     Indication: BIPOLAR II DISORDER

REACTIONS (1)
  - DRUG DEPENDENCE [None]
